FAERS Safety Report 4786168-6 (Version None)
Quarter: 2005Q3

REPORT INFORMATION
  Report Type: 
  Country: None (occurrence: None)
  Receive Date: 20050930
  Receipt Date: 20050930
  Transmission Date: 20060218
  Serious: Yes (Other)
  Sender: FDA-Public Use
  Company Number: None

PATIENT
  Age: 4 Year
  Sex: Female
  Weight: 12 kg

DRUGS (1)
  1. CELL TRANSPLANT [Suspect]

REACTIONS (4)
  - CATHETER RELATED INFECTION [None]
  - KLEBSIELLA BACTERAEMIA [None]
  - POST PROCEDURAL COMPLICATION [None]
  - PYREXIA [None]
